FAERS Safety Report 10211589 (Version 1)
Quarter: 2014Q2

REPORT INFORMATION
  Report Type: Spontaneous
  Country: US (occurrence: US)
  Receive Date: 20140602
  Receipt Date: 20140602
  Transmission Date: 20141212
  Serious: No
  Sender: FDA-Public Use
  Company Number: US-PFIZER INC-2014150401

PATIENT
  Age: 65 Year
  Sex: Female
  Weight: 52.15 kg

DRUGS (11)
  1. LYRICA [Suspect]
     Indication: FIBROMYALGIA
     Dosage: 50 MG, 2X/DAY
     Dates: start: 201405
  2. LYRICA [Suspect]
     Indication: NEUROPATHY PERIPHERAL
  3. FOLIC ACID [Concomitant]
     Indication: FOLATE DEFICIENCY
     Dosage: 1 MG, DAILY
  4. METHOTREXATE [Concomitant]
     Indication: ARTHRITIS
     Dosage: 2.5 MG, 4X/WEEK
  5. HYDROXYCHLOROQUINE [Concomitant]
     Indication: ARTHRITIS
     Dosage: 200 MG, 2X/DAY
  6. BUPROPION EXTENDED RELEASE [Concomitant]
     Indication: MAJOR DEPRESSION
     Dosage: 300 MG, DAILY
  7. LEXAPRO [Concomitant]
     Indication: MAJOR DEPRESSION
     Dosage: 20 MG, DAILY
  8. OMEPRAZOLE [Concomitant]
     Indication: GASTRIC DISORDER
     Dosage: 30 MG, 2X/DAY
  9. FLURAZEPAM [Concomitant]
     Indication: SLEEP DISORDER
     Dosage: 50 MG, DAILY
  10. TRAZODONE [Concomitant]
     Indication: ANXIETY
     Dosage: 50 MG, DAILY
  11. BONIVA [Concomitant]
     Indication: OSTEOPOROSIS
     Dosage: 150 MG, UNK

REACTIONS (4)
  - Speech disorder [Not Recovered/Not Resolved]
  - Disturbance in attention [Not Recovered/Not Resolved]
  - Pain [Not Recovered/Not Resolved]
  - Balance disorder [Not Recovered/Not Resolved]
